FAERS Safety Report 9640362 (Version 2)
Quarter: 2013Q4

REPORT INFORMATION
  Report Type: Report from Study
  Country: US (occurrence: US)
  Receive Date: 20131023
  Receipt Date: 20131023
  Transmission Date: 20140711
  Serious: Yes (Hospitalization, Other)
  Sender: FDA-Public Use
  Company Number: PHHO2012US010736

PATIENT
  Age: 59 Year
  Sex: Female

DRUGS (5)
  1. SOM230 [Suspect]
     Indication: PANCREATIC CARCINOMA
     Dosage: 900 UG, BID
     Route: 048
     Dates: start: 20120718
  2. GLUCOTROL [Concomitant]
  3. SALICYLATES [Concomitant]
  4. BETA BLOCKING AGENTS [Concomitant]
  5. METOPROLOL [Concomitant]

REACTIONS (6)
  - Hyperglycaemia [Recovered/Resolved]
  - Abdominal pain [Recovered/Resolved]
  - Septic shock [Recovered/Resolved]
  - Urinary tract infection [Recovered/Resolved]
  - Pancreatic leak [Recovered/Resolved]
  - Amylase increased [Recovered/Resolved]
